FAERS Safety Report 21566394 (Version 1)
Quarter: 2022Q4

REPORT INFORMATION
  Report Type: Spontaneous
  Country: US (occurrence: None)
  Receive Date: 20221108
  Receipt Date: 20221108
  Transmission Date: 20230113
  Serious: Yes (Other)
  Sender: FDA-Public Use
  Company Number: US-Hikma Pharmaceuticals USA Inc.-US-H14001-22-02817

PATIENT
  Age: 41 Year
  Sex: Female
  Weight: 59 kg

DRUGS (3)
  1. MORPHINE [Suspect]
     Active Substance: MORPHINE
     Indication: Product used for unknown indication
     Route: 065
     Dates: start: 20221005
  2. SEIZALAM [Suspect]
     Active Substance: MIDAZOLAM HYDROCHLORIDE
     Indication: Aggression
     Dosage: UNKNOWN
     Dates: start: 20221005
  3. PROZAC [Concomitant]
     Active Substance: FLUOXETINE HYDROCHLORIDE
     Indication: Product used for unknown indication
     Dosage: UNKNOWN
     Route: 048

REACTIONS (13)
  - Amnesia [Not Recovered/Not Resolved]
  - Loss of consciousness [Unknown]
  - Electric shock [Unknown]
  - Dyspnoea [Recovered/Resolved]
  - Wound [Recovering/Resolving]
  - Skin abrasion [Recovering/Resolving]
  - Aggression [Recovered/Resolved]
  - Confusional state [Recovered/Resolved]
  - Somnolence [Recovered/Resolved]
  - Sedation [Unknown]
  - Drug interaction [Unknown]
  - Feeling abnormal [Unknown]
  - Unevaluable event [Recovered/Resolved]

NARRATIVE: CASE EVENT DATE: 20221005
